FAERS Safety Report 5840007-0 (Version None)
Quarter: 2008Q3

REPORT INFORMATION
  Report Type: 
  Country: None (occurrence: None)
  Receive Date: 20080811
  Receipt Date: 20080729
  Transmission Date: 20090109
  Serious: Yes (Hospitalization, Other)
  Sender: FDA-Public Use
  Company Number: TR-NOVOPROD-276383

PATIENT
  Age: 25 Year
  Sex: Male
  Weight: 37 kg

DRUGS (3)
  1. NORDITROPIN [Suspect]
     Indication: HYPOPITUITARISM
     Dosage: 1.7 MG, QD
     Route: 058
     Dates: start: 20080404, end: 20080429
  2. NORDITROPIN [Suspect]
     Dosage: .2 MG, QD 6 DAYS/WEEK
  3. PREGNYL [Suspect]
     Indication: HYPOPITUITARISM
     Dosage: 5000 IU, QW
     Dates: start: 20080404, end: 20080429

REACTIONS (2)
  - DERMATITIS ALLERGIC [None]
  - HYPERSENSITIVITY [None]
